FAERS Safety Report 5401248-X (Version None)
Quarter: 2007Q3

REPORT INFORMATION
  Report Type: 
  Country: None (occurrence: None)
  Receive Date: 20070731
  Receipt Date: 20070724
  Transmission Date: 20080115
  Serious: Yes (Hospitalization)
  Sender: FDA-Public Use
  Company Number: FR-AVENTIS-200712369FR

PATIENT
  Age: 71 Year
  Sex: Female

DRUGS (6)
  1. FLAGYL [Suspect]
     Route: 042
     Dates: start: 20070617, end: 20070618
  2. ANTIBACTERIALS FOR SYSTEMIC USE [Suspect]
     Route: 042
     Dates: start: 20070617, end: 20070617
  3. SPASFON                            /00934601/ [Suspect]
     Route: 042
     Dates: start: 20070617, end: 20070617
  4. PLAVIX [Concomitant]
     Indication: PROPHYLAXIS
     Route: 048
  5. XALATAN [Concomitant]
     Dosage: ROUTE: CONJUNCTIVAL, RETROBULBAR
     Route: 050
  6. ZOLTUM                             /00661201/ [Concomitant]

REACTIONS (3)
  - ANGIOEDEMA [None]
  - HYPOTENSION [None]
  - RASH [None]
